FAERS Safety Report 4294394-8 (Version None)
Quarter: 2004Q1

REPORT INFORMATION
  Report Type: 
  Country: None (occurrence: None)
  Receive Date: 20040211
  Receipt Date: 20030514
  Transmission Date: 20041129
  Serious: Yes (Hospitalization)
  Sender: FDA-Public Use
  Company Number: A0406417A

PATIENT
  Age: 49 Year
  Sex: Female

DRUGS (10)
  1. MELPHALAN INJECTION (MELPHALAN) [Suspect]
     Indication: MULTIPLE MYELOMA
     Dosage: 230 MG/ NTRAVENOUS
     Route: 042
     Dates: start: 20030407, end: 20030407
  2. CARMUSTINE [Suspect]
     Indication: MULTIPLE MYELOMA
     Dosage: 500 MG/ INTRAVENOUS
     Route: 042
     Dates: start: 20030403
  3. ETOPOSIDE [Suspect]
     Indication: MULTIPLE MYELOMA
     Dosage: 300 MG PER DAY/ INTRAVENOUS
     Route: 042
     Dates: start: 20030403, end: 20030406
  4. CYTARABINE [Suspect]
     Indication: MULTIPLE MYELOMA
     Dosage: 660 MG/ INTRAVENOUS
     Route: 042
     Dates: start: 20030403, end: 20030406
  5. FLUCONAZOLE [Concomitant]
  6. ACYCLOVIR [Concomitant]
  7. GATIFLOXACIN [Concomitant]
  8. DISODDIUM PAMIDRONATE [Concomitant]
  9. LORAZEPAM [Concomitant]
  10. COMBIVENT [Concomitant]

REACTIONS (2)
  - FEBRILE NEUTROPENIA [None]
  - WHITE BLOOD CELL COUNT DECREASED [None]
